FAERS Safety Report 21561392 (Version 1)
Quarter: 2022Q4

REPORT INFORMATION
  Report Type: Spontaneous
  Country: US (occurrence: None)
  Receive Date: 20221104
  Receipt Date: 20221104
  Transmission Date: 20230113
  Serious: Yes (Disabling, Other)
  Sender: FDA-Public Use
  Company Number: None

PATIENT
  Age: 52 Year
  Sex: Female
  Weight: 60.75 kg

DRUGS (5)
  1. CORTIZONE 10 [Suspect]
     Active Substance: HYDROCORTISONE
     Indication: Pruritus
     Dosage: FREQUENCY : AS NEEDED;?
     Route: 061
     Dates: start: 20000101, end: 20221021
  2. ZOLOFT [Concomitant]
     Active Substance: SERTRALINE HYDROCHLORIDE
  3. kolonopin [Concomitant]
  4. VALACYCLOVIR [Concomitant]
     Active Substance: VALACYCLOVIR HYDROCHLORIDE
  5. CLARITIN [Concomitant]
     Active Substance: LORATADINE

REACTIONS (2)
  - Cataract [None]
  - Headache [None]

NARRATIVE: CASE EVENT DATE: 20221021
